FAERS Safety Report 7917607-7 (Version None)
Quarter: 2011Q4

REPORT INFORMATION
  Report Type: 
  Country: None (occurrence: None)
  Receive Date: 20111114
  Receipt Date: 20111108
  Transmission Date: 20120403
  Serious: Yes (Other)
  Sender: FDA-Public Use
  Company Number: 2011SP052512

PATIENT
  Age: 87 Year
  Sex: Male

DRUGS (10)
  1. AMOXICILLIN AND CLAVULANATE POTASSIUM [Concomitant]
  2. MAGNESIUM SULFATE [Concomitant]
  3. SUFENTANIL CITRATE [Concomitant]
  4. AMIODARONE HCL [Concomitant]
  5. ETOMIDATE [Concomitant]
  6. SEVOFLURANE [Concomitant]
  7. TRAMADOL HCL [Concomitant]
  8. ROCURONIUM BROMIDE [Suspect]
     Indication: INDUCTION OF ANAESTHESIA
     Dosage: 9 MG/KG; ONCE
  9. FUROSEMIDE [Concomitant]
  10. ACETAMINOPHEN [Concomitant]

REACTIONS (2)
  - NEUROMUSCULAR BLOCK PROLONGED [None]
  - ATRIAL FIBRILLATION [None]
